FAERS Safety Report 4962953-2 (Version None)
Quarter: 2006Q2

REPORT INFORMATION
  Report Type: 
  Country: None (occurrence: None)
  Receive Date: 20060405
  Receipt Date: 20060328
  Transmission Date: 20061013
  Serious: Yes (Hospitalization)
  Sender: FDA-Public Use
  Company Number: US-AMGEN-KDL170034

PATIENT
  Sex: Female
  Weight: 63.6 kg

DRUGS (1)
  1. PROCRIT [Suspect]
     Indication: MYELODYSPLASTIC SYNDROME
     Dates: start: 20030101

REACTIONS (2)
  - DEEP VEIN THROMBOSIS [None]
  - HEPATIC MASS [None]
